FAERS Safety Report 10255086 (Version 1)
Quarter: 2014Q2

REPORT INFORMATION
  Report Type: Spontaneous
  Country: US (occurrence: US)
  Receive Date: 20140624
  Receipt Date: 20140624
  Transmission Date: 20141212
  Serious: Yes (Hospitalization)
  Sender: FDA-Public Use
  Company Number: US-PFIZER INC-2014168570

PATIENT
  Age: 74 Year
  Sex: Female

DRUGS (5)
  1. SUTENT [Suspect]
     Indication: RENAL CANCER
     Dosage: STRENGTH OF DOSAGE FORM 37.5 MG
     Dates: start: 20140418
  2. ATENOLOL [Concomitant]
     Dosage: UNK
  3. PRAVASTATIN SODIUM [Concomitant]
     Dosage: UNK
  4. LOVAZA [Concomitant]
     Dosage: UNK
  5. MAGNESIUM OXIDE [Concomitant]
     Dosage: UNK

REACTIONS (1)
  - Malaise [Unknown]
